FAERS Safety Report 6813254-9 (Version None)
Quarter: 2010Q3

REPORT INFORMATION
  Report Type: 
  Country: None (occurrence: None)
  Receive Date: 20100701
  Receipt Date: 20100623
  Transmission Date: 20110219
  Serious: Yes (Disabling, Other)
  Sender: FDA-Public Use
  Company Number: US-PFIZER INC-2008155887

PATIENT
  Sex: Female
  Weight: 112 kg

DRUGS (18)
  1. CHANTIX [Suspect]
     Indication: SMOKING CESSATION THERAPY
     Dosage: UNK
     Dates: start: 20080101, end: 20080101
  2. CHANTIX [Suspect]
     Dosage: UNK
     Route: 048
  3. NICORETTE [Suspect]
     Dosage: UNK
  4. CELEXA [Concomitant]
     Indication: ANXIETY
     Dosage: 40 MG, 1X/DAY
     Route: 048
  5. NORCO [Concomitant]
     Indication: BACK PAIN
     Dosage: 10/325
     Route: 048
  6. NORCO [Concomitant]
     Indication: PAIN
  7. IBUPROFEN [Concomitant]
     Indication: ARTHRITIS
     Dosage: 200 MG, 4X/DAY
     Route: 048
  8. VITAMIN B-12 [Concomitant]
     Indication: FATIGUE
     Dosage: 1000 MG, MONTHLY
  9. SOMA [Concomitant]
  10. ALEVE (CAPLET) [Concomitant]
  11. FLEXERIL [Concomitant]
     Dosage: UNK
  12. VITAMIN E [Concomitant]
  13. VITAMIN D [Concomitant]
     Dosage: UNK
  14. FISH OIL [Concomitant]
     Dosage: UNK
  15. OSTEO BI-FLEX [Concomitant]
     Indication: ARTHROPATHY
     Dosage: UNK
     Route: 048
  16. POTASSIUM [Concomitant]
     Indication: MUSCLE SPASMS
     Dosage: 595 MG, UNK
     Route: 048
  17. PROGESTERONE [Concomitant]
     Indication: HOT FLUSH
     Dosage: 0.5/0.2
     Route: 061
  18. PROGESTERONE [Concomitant]
     Indication: NIGHT SWEATS

REACTIONS (6)
  - BLOOD PRESSURE INCREASED [None]
  - DEPRESSION [None]
  - GAIT DISTURBANCE [None]
  - HALLUCINATION [None]
  - HYPERSOMNIA [None]
  - MUSCULOSKELETAL DISORDER [None]
